FAERS Safety Report 15745191 (Version 1)
Quarter: 2018Q4

REPORT INFORMATION
  Report Type: Spontaneous
  Country: US (occurrence: US)
  Receive Date: 20181220
  Receipt Date: 20181220
  Transmission Date: 20190205
  Serious: No
  Sender: FDA-Public Use
  Company Number: US-ADAMAS PHARMA, LLC-2018ADA02665

PATIENT
  Age: 76 Year
  Sex: Male
  Weight: 87.98 kg

DRUGS (11)
  1. ACIPHEX [Concomitant]
     Active Substance: RABEPRAZOLE SODIUM
  2. GOCOVRI [Suspect]
     Active Substance: AMANTADINE
     Indication: DYSKINESIA
     Dosage: 137 MG, 1X/DAY AT BEDTIME
     Route: 048
     Dates: start: 20181009, end: 20181015
  3. GOCOVRI [Suspect]
     Active Substance: AMANTADINE
     Dosage: 274 MG, 1X/DAY AT BEDTIME
     Route: 048
     Dates: start: 20181016, end: 20181019
  4. GABAPENTIN. [Concomitant]
     Active Substance: GABAPENTIN
  5. PRAMIPEXOLE. [Concomitant]
     Active Substance: PRAMIPEXOLE
     Dosage: UNK, 3X/DAY
  6. RASAGILINE. [Concomitant]
     Active Substance: RASAGILINE
  7. SINEMET [Concomitant]
     Active Substance: CARBIDOPA\LEVODOPA
  8. CARBIDOPA. [Concomitant]
     Active Substance: CARBIDOPA
  9. MACRODANTIN [Concomitant]
     Active Substance: NITROFURANTOIN
     Dosage: ^LOW DOSE^ 1X/DAY
  10. TRAMADOL. [Concomitant]
     Active Substance: TRAMADOL
     Dosage: UNK, AS NEEDED
  11. COZAAR [Concomitant]
     Active Substance: LOSARTAN POTASSIUM

REACTIONS (7)
  - Nightmare [Recovered/Resolved]
  - Dizziness [Recovered/Resolved]
  - Product dose omission [Recovered/Resolved]
  - Hallucinations, mixed [Recovered/Resolved]
  - Drug ineffective [Recovered/Resolved]
  - Balance disorder [Recovered/Resolved]
  - Visual impairment [Recovered/Resolved]

NARRATIVE: CASE EVENT DATE: 201810
